FAERS Safety Report 9316210 (Version 1)
Quarter: 2013Q2

REPORT INFORMATION
  Report Type: Spontaneous
  Country: DE (occurrence: DE)
  Receive Date: 20130530
  Receipt Date: 20130530
  Transmission Date: 20140414
  Serious: Yes (Congenital Anomaly)
  Sender: FDA-Public Use
  Company Number: PHHY2013DE053168

PATIENT
  Sex: Female
  Weight: 2.92 kg

DRUGS (19)
  1. FORADIL P [Suspect]
     Indication: BRONCHITIS
     Dosage: UNK
     Route: 064
  2. MIFLONIDE [Suspect]
     Indication: ASTHMA
     Dosage: UNK
     Route: 064
  3. VIANI [Suspect]
     Indication: BRONCHITIS
     Dosage: UNK
     Route: 064
  4. CEFUROXIM STADA [Concomitant]
     Indication: BRONCHITIS
     Dosage: UNK
     Route: 064
  5. PENICILLIN V [Concomitant]
     Indication: BRONCHITIS
     Dosage: UNK
     Route: 064
  6. ACC [Concomitant]
     Indication: BRONCHITIS
     Dosage: UNK
     Route: 064
  7. BUSCOPAN [Concomitant]
     Indication: HYDRONEPHROSIS
     Dosage: UNK
     Route: 064
  8. RANITIDINE [Concomitant]
     Indication: EPIGASTRIC DISCOMFORT
     Dosage: UNK
     Route: 064
  9. OMEPRAZOLE [Concomitant]
     Indication: PROPHYLAXIS AGAINST GASTROINTESTINAL ULCER
     Dosage: UNK
     Route: 064
  10. BRONCHIPRET                        /01257501/ [Concomitant]
     Indication: BRONCHITIS
     Dosage: UNK
     Route: 064
  11. SINUPRET [Concomitant]
     Indication: BRONCHITIS
     Dosage: 3 DF, TID
     Route: 064
  12. L-THYROXIN [Concomitant]
     Indication: HYPOTHYROIDISM
     Dosage: UNK
     Route: 064
  13. THYBON [Concomitant]
     Indication: HYPOTHYROIDISM
     Dosage: 20 UG, QD
     Route: 064
  14. TANTUM VERDE [Concomitant]
     Indication: BRONCHITIS
     Dosage: UNK
     Route: 064
  15. AMOXICILLIN [Concomitant]
     Indication: VAGINAL INFECTION
     Dosage: UNK
     Route: 064
  16. BELOC-ZOC MITE [Concomitant]
     Indication: TACHYCARDIA
     Dosage: UNK
     Route: 064
  17. NASICUR [Concomitant]
     Indication: NASOPHARYNGITIS
     Dosage: UNK
     Route: 064
  18. FOLSAEURE [Concomitant]
     Indication: PROPHYLAXIS OF NEURAL TUBE DEFECT
     Dosage: 5 MG, QD
     Route: 064
  19. PENHEXAL [Concomitant]
     Indication: BRONCHITIS
     Dosage: 4.5 MIO I.E
     Route: 064

REACTIONS (2)
  - Haemangioma congenital [Not Recovered/Not Resolved]
  - Foetal exposure during pregnancy [Unknown]
